FAERS Safety Report 16581368 (Version 1)
Quarter: 2019Q3

REPORT INFORMATION
  Report Type: Spontaneous
  Country: US (occurrence: US)
  Receive Date: 20190716
  Receipt Date: 20190716
  Transmission Date: 20191004
  Serious: No
  Sender: FDA-Public Use
  Company Number: US-UPSHER-SMITH LABORATORIES, LLC-2018USL00400

PATIENT
  Sex: Male
  Weight: 95.24 kg

DRUGS (4)
  1. TESTOSTERONE. [Suspect]
     Active Substance: TESTOSTERONE
     Indication: ANDROGEN DEFICIENCY
     Dosage: 50 MG, 2X/DAY TO THE LEGS
     Route: 061
     Dates: end: 201806
  2. TESTOSTERONE. [Suspect]
     Active Substance: TESTOSTERONE
     Dosage: 50 MG, 2X/DAY TO THE SHOULDERS
     Route: 061
     Dates: start: 201806
  3. OXAYDO [Concomitant]
     Active Substance: OXYCODONE HYDROCHLORIDE
  4. CENTRUM MULTIVITAMIN [Concomitant]

REACTIONS (1)
  - Paraesthesia [Recovered/Resolved]
